FAERS Safety Report 19896186 (Version 1)
Quarter: 2021Q3

REPORT INFORMATION
  Report Type: Spontaneous
  Country: US (occurrence: US)
  Receive Date: 20210929
  Receipt Date: 20210929
  Transmission Date: 20211014
  Serious: No
  Sender: FDA-Public Use
  Company Number: US-PFIZER INC-2021436668

PATIENT
  Age: 63 Year
  Sex: Female

DRUGS (1)
  1. IBRANCE [Suspect]
     Active Substance: PALBOCICLIB
     Indication: BREAST CANCER FEMALE
     Dosage: 125 MG, CYCLIC (IBRANCE 125MG BY MOUTH QD FOR 21 DAYS)
     Route: 048
     Dates: start: 20210417

REACTIONS (2)
  - Product dose omission issue [Unknown]
  - Emotional disorder [Unknown]
